FAERS Safety Report 14046652 (Version 1)
Quarter: 2017Q4

REPORT INFORMATION
  Report Type: Spontaneous
  Country: US (occurrence: None)
  Receive Date: 20171004
  Receipt Date: 20171004
  Transmission Date: 20180321
  Serious: Yes (Other)
  Sender: FDA-Public Use
  Company Number: None

PATIENT
  Age: 80 Year
  Sex: Female
  Weight: 77.11 kg

DRUGS (8)
  1. HCTZ [Concomitant]
     Active Substance: HYDROCHLOROTHIAZIDE
  2. FISH OIL [Concomitant]
     Active Substance: FISH OIL
  3. ZEAXANTHIN [Concomitant]
     Active Substance: ZEAXANTHIN
  4. SULFAMETH/TMP 800MG/160MG [Suspect]
     Active Substance: SULFAMETHOXAZOLE\TRIMETHOPRIM
     Indication: URINARY TRACT INFECTION
     Dosage: 800MGM/160MGM 2X DAILY Q 12H  X 10 DAYS BID Q 12HRS ORALLY
     Route: 048
     Dates: start: 20170907, end: 20170912
  5. OMEGA 3 [Concomitant]
     Active Substance: OMEGA-3 FATTY ACIDS
  6. LUTEIN [Concomitant]
     Active Substance: LUTEIN
  7. SULFAMETH/TMP 800MG/160MG [Suspect]
     Active Substance: SULFAMETHOXAZOLE\TRIMETHOPRIM
     Indication: CHROMATURIA
     Dosage: 800MGM/160MGM 2X DAILY Q 12H  X 10 DAYS BID Q 12HRS ORALLY
     Route: 048
     Dates: start: 20170907, end: 20170912
  8. SULFAMETH/TMP 800MG/160MG [Suspect]
     Active Substance: SULFAMETHOXAZOLE\TRIMETHOPRIM
     Indication: INCONTINENCE
     Dosage: 800MGM/160MGM 2X DAILY Q 12H  X 10 DAYS BID Q 12HRS ORALLY
     Route: 048
     Dates: start: 20170907, end: 20170912

REACTIONS (6)
  - Abdominal pain upper [None]
  - Skin burning sensation [None]
  - Hypersensitivity [None]
  - Blister [None]
  - Diarrhoea [None]
  - Rash [None]

NARRATIVE: CASE EVENT DATE: 20170908
